FAERS Safety Report 18313153 (Version 1)
Quarter: 2020Q3

REPORT INFORMATION
  Report Type: Spontaneous
  Country: US (occurrence: US)
  Receive Date: 20200925
  Receipt Date: 20200925
  Transmission Date: 20201103
  Serious: Yes (Hospitalization, Other)
  Sender: FDA-Public Use
  Company Number: US-HIKMA PHARMACEUTICALS USA INC.-US-H14001-20-52131

PATIENT
  Age: 39 Year
  Sex: Male

DRUGS (1)
  1. CLOTRIMAZOLE. [Suspect]
     Active Substance: CLOTRIMAZOLE
     Indication: ORAL CANDIDIASIS
     Route: 048

REACTIONS (7)
  - Weight decreased [Recovering/Resolving]
  - Venoocclusive disease [Recovering/Resolving]
  - Pancreatitis [Unknown]
  - Cholestasis [Recovering/Resolving]
  - Jaundice cholestatic [Recovering/Resolving]
  - Cholecystitis acute [Recovering/Resolving]
  - Drug-induced liver injury [Recovering/Resolving]
